FAERS Safety Report 7207300-0 (Version None)
Quarter: 2011Q1

REPORT INFORMATION
  Report Type: 
  Country: None (occurrence: None)
  Receive Date: 20110103
  Receipt Date: 20101221
  Transmission Date: 20110831
  Serious: Yes (Hospitalization)
  Sender: FDA-Public Use
  Company Number: AU-ROCHE-724695

PATIENT
  Sex: Male
  Weight: 95.4 kg

DRUGS (10)
  1. DEXAMETHASONE [Concomitant]
     Dates: start: 20100118
  2. ENOXAPARIN SODIUM [Concomitant]
     Dates: start: 20100427
  3. DEXAMETHASONE [Concomitant]
     Dates: start: 20100119
  4. ENDONE [Concomitant]
     Dates: start: 20100517
  5. PLACEBO [Suspect]
     Indication: GLIOBLASTOMA
     Dosage: DOSE BLINDED, LAST DOSE PRIOR TO SAE: 12 APRIL 2010
     Route: 042
     Dates: start: 20100118, end: 20100428
  6. TEMOZOLOMIDE [Suspect]
     Indication: GLIOBLASTOMA
     Dosage: FERQUENCY; DAY 1-5, LAST DOSE PRIOR TO SAE; 2 APRIL 2010
     Route: 048
     Dates: start: 20100118, end: 20100428
  7. KEPPRA [Concomitant]
     Dates: start: 20100329
  8. VALPROATE SODIUM [Concomitant]
     Dates: start: 20100119
  9. OMEPRAZOLE [Concomitant]
     Dates: start: 20100119
  10. LORAZEPAM [Concomitant]
     Dates: start: 20100517

REACTIONS (1)
  - PNEUMOCYSTIS JIROVECI PNEUMONIA [None]
